FAERS Safety Report 6429494-7 (Version None)
Quarter: 2009Q4

REPORT INFORMATION
  Report Type: 
  Country: None (occurrence: None)
  Receive Date: 20091105
  Receipt Date: 20090717
  Transmission Date: 20100525
  Serious: No
  Sender: FDA-Public Use
  Company Number: US-ABBOTT-09P-163-0586670-00

PATIENT
  Sex: Female
  Weight: 65.83 kg

DRUGS (4)
  1. KALETRA [Suspect]
     Indication: HIV INFECTION
     Route: 048
     Dates: start: 20060101
  2. RISPERDAL [Concomitant]
     Indication: AUTISM
  3. EPZICOM [Concomitant]
     Indication: HIV INFECTION
  4. CELEXA [Concomitant]
     Indication: DEPRESSION
     Route: 048

REACTIONS (2)
  - ANXIETY [None]
  - CONFUSIONAL STATE [None]
